FAERS Safety Report 9574943 (Version 2)
Quarter: 2013Q4

REPORT INFORMATION
  Report Type: Spontaneous
  Country: DE (occurrence: DE)
  Receive Date: 20131001
  Receipt Date: 20131011
  Transmission Date: 20140711
  Serious: Yes (Hospitalization)
  Sender: FDA-Public Use
  Company Number: DE-ACTAVIS-2013-17442

PATIENT
  Age: 81 Year
  Sex: Male

DRUGS (9)
  1. DICLOFENAC SODIUM (UNKNOWN) [Suspect]
     Indication: ARTHRALGIA
     Dosage: 150 MG, DAILY
     Route: 048
  2. NOVALGIN /06276704/ [Suspect]
     Indication: ARTHRALGIA
     Dosage: 1500 MG, DAILY
     Route: 048
     Dates: start: 20130802
  3. NOVALGIN /06276704/ [Suspect]
     Dosage: 43500 MG, UNK
     Route: 048
  4. NOVALGIN /06276704/ [Suspect]
     Dosage: 500 MG, UNK
     Route: 048
  5. PANTOZOL                           /01263204/ [Concomitant]
     Indication: GASTRITIS PROPHYLAXIS
     Dosage: 20 MG, DAILY
     Dates: start: 20130905
  6. METOHEXAL                          /00376902/ [Concomitant]
     Indication: HYPERTENSION
     Dosage: 95 MG, DAILY
     Route: 048
  7. TOREM                              /01036501/ [Concomitant]
     Indication: HYPERTENSION
     Dosage: 10 MG, DAILY
     Route: 048
  8. NITRENDIPIN [Concomitant]
     Indication: HYPERTENSION
     Dosage: 20 MG, DAILY
     Route: 048
  9. RAMILICH [Concomitant]
     Indication: HYPERTENSION
     Dosage: 10 MG, DAILY
     Route: 048

REACTIONS (3)
  - Jaundice [Recovering/Resolving]
  - Ocular icterus [Recovering/Resolving]
  - Drug-induced liver injury [Recovering/Resolving]
